FAERS Safety Report 25157812 (Version 1)
Quarter: 2025Q2

REPORT INFORMATION
  Report Type: Report from Study
  Country: US (occurrence: US)
  Receive Date: 20250403
  Receipt Date: 20250403
  Transmission Date: 20250717
  Serious: Yes (Hospitalization, Other)
  Sender: ABBVIE
  Company Number: US-ABBVIE-6203103

PATIENT
  Age: 41 Year
  Sex: Male

DRUGS (1)
  1. RINVOQ [Suspect]
     Active Substance: UPADACITINIB
     Indication: Crohn^s disease
     Route: 048
     Dates: start: 20241202

REACTIONS (4)
  - Fatigue [Unknown]
  - Hip surgery [Unknown]
  - Clostridium difficile infection [Recovering/Resolving]
  - Spinal operation [Recovering/Resolving]

NARRATIVE: CASE EVENT DATE: 20250201
